FAERS Safety Report 24422022 (Version 2)
Quarter: 2024Q4

REPORT INFORMATION
  Report Type: Spontaneous
  Country: IT (occurrence: IT)
  Receive Date: 20241010
  Receipt Date: 20241031
  Transmission Date: 20250115
  Serious: Yes (Death, Hospitalization, Other)
  Sender: CELLTRION
  Company Number: IT-ROCHE-3534957

PATIENT

DRUGS (26)
  1. RITUXIMAB [Suspect]
     Active Substance: RITUXIMAB
     Indication: Diffuse large B-cell lymphoma
     Dosage: R-CHOP CHEMOTHERAPY 2 CYCLES/(ADDITIONAL INFORMATION ON DRUG (CODED): ABUSE)
     Route: 065
  2. CYCLOPHOSPHAMIDE [Suspect]
     Active Substance: CYCLOPHOSPHAMIDE
     Indication: Diffuse large B-cell lymphoma
     Dosage: R-CHOP CHEMOTHERAPY; 6 CYCLES
     Route: 065
  3. VINCRISTINE [Suspect]
     Active Substance: VINCRISTINE
     Indication: Diffuse large B-cell lymphoma
     Dosage: R-CHOP CHEMOTHERAPY; 6 CYCLES
     Route: 065
  4. MYCOPHENOLATE MOFETIL [Suspect]
     Active Substance: MYCOPHENOLATE MOFETIL
     Indication: Prophylaxis against transplant rejection
     Dosage: 500-750 MG/DAY
     Route: 065
  5. MYCOPHENOLATE MOFETIL [Suspect]
     Active Substance: MYCOPHENOLATE MOFETIL
     Indication: Immunosuppressant drug therapy
  6. DOXORUBICIN HYDROCHLORIDE [Suspect]
     Active Substance: DOXORUBICIN HYDROCHLORIDE
     Indication: Diffuse large B-cell lymphoma
     Dosage: R-CHOP CHEMOTHERAPY; 6 CYCLES
     Route: 065
  7. BASILIXIMAB [Suspect]
     Active Substance: BASILIXIMAB
     Indication: Immunosuppressant drug therapy
     Route: 065
  8. PREDNISONE [Suspect]
     Active Substance: PREDNISONE
     Indication: Diffuse large B-cell lymphoma
     Dosage: R-CHOP CHEMOTHERAPY
     Route: 065
  9. OXCARBAZEPINE [Concomitant]
     Active Substance: OXCARBAZEPINE
     Indication: Diffuse large B-cell lymphoma
     Dosage: 10 YEARS
     Route: 065
  10. OXCARBAZEPINE [Concomitant]
     Active Substance: OXCARBAZEPINE
     Indication: Seizure
  11. TACROLIMUS [Concomitant]
     Active Substance: TACROLIMUS
     Indication: Immunosuppressant drug therapy
     Dosage: RECEIVED 2.5-3 MG/DAY
     Route: 065
  12. TACROLIMUS [Concomitant]
     Active Substance: TACROLIMUS
     Dosage: BID
  13. LEVOCARNITINE [Concomitant]
     Active Substance: LEVOCARNITINE
     Indication: Methylmalonic acidaemia
     Dosage: 100 MG/KG, DAILY
     Route: 065
  14. LEVOCARNITINE [Concomitant]
     Active Substance: LEVOCARNITINE
     Indication: Metabolic disorder
     Dosage: 100 MG/KG
     Route: 065
  15. LEVOCARNITINE [Concomitant]
     Active Substance: LEVOCARNITINE
     Dosage: 100 MG/KG
     Route: 065
  16. LEVOCARNITINE [Concomitant]
     Active Substance: LEVOCARNITINE
     Dosage: 100 MG/KG
     Route: 065
  17. LEVOCARNITINE [Concomitant]
     Active Substance: LEVOCARNITINE
     Dosage: 100 MG/KG
     Route: 065
  18. SODIUM BICARBONATE [Concomitant]
     Active Substance: SODIUM BICARBONATE
     Indication: Supplementation therapy
     Dosage: 7.5 G/DAY IN THREE DOSES
     Route: 065
  19. PROTEIN [Concomitant]
     Active Substance: PROTEIN
     Indication: Metabolic disorder
     Dosage: 30 G, QD
     Route: 065
  20. PROTEIN [Concomitant]
     Active Substance: PROTEIN
     Dosage: 45 G, QD
     Route: 065
  21. PROTEIN [Concomitant]
     Active Substance: PROTEIN
     Dosage: 45 G, QD
     Route: 065
  22. PROTEIN [Concomitant]
     Active Substance: PROTEIN
     Dosage: 45 G, QD
     Route: 065
  23. MEROPENEM [Concomitant]
     Active Substance: MEROPENEM
     Indication: Immunosuppression
     Dosage: UNK
     Route: 065
  24. VALACYCLOVIR [Concomitant]
     Active Substance: VALACYCLOVIR HYDROCHLORIDE
     Indication: Visual acuity tests abnormal
     Dosage: UNK
     Route: 065
  25. LINEZOLID [Concomitant]
     Active Substance: LINEZOLID
     Indication: Immunosuppression
     Dosage: UNK
     Route: 065
  26. AMPHOTERICIN B [Concomitant]
     Active Substance: AMPHOTERICIN B
     Indication: Immunosuppression
     Dosage: UNK
     Route: 065

REACTIONS (16)
  - Diffuse large B-cell lymphoma [Fatal]
  - Toxicity to various agents [Fatal]
  - Pulmonary embolism [Fatal]
  - Basal ganglia stroke [Fatal]
  - Metabolic acidosis [Fatal]
  - Pancytopenia [Fatal]
  - Peripheral sensory neuropathy [Fatal]
  - Renal failure [Fatal]
  - Cardiopulmonary failure [Fatal]
  - Post transplant lymphoproliferative disorder [Unknown]
  - Hyperglycaemia [Recovered/Resolved]
  - Pneumonia [Unknown]
  - Keratouveitis [Recovering/Resolving]
  - Pyrexia [Not Recovered/Not Resolved]
  - Tonsillitis [Recovered/Resolved]
  - Varicella [Recovering/Resolving]
